FAERS Safety Report 13659594 (Version 1)
Quarter: 2017Q2

REPORT INFORMATION
  Report Type: Spontaneous
  Country: US (occurrence: US)
  Receive Date: 20170616
  Receipt Date: 20170616
  Transmission Date: 20170830
  Serious: Yes (Hospitalization)
  Sender: FDA-Public Use
  Company Number: None

PATIENT
  Age: 72 Year
  Sex: Female
  Weight: 97.2 kg

DRUGS (10)
  1. LANTUS [Suspect]
     Active Substance: INSULIN GLARGINE
     Indication: DIABETES MELLITUS
     Dosage: CHRONIC ?10 UNITS NIGHTLY SQ
     Route: 058
  2. DEPAKOTE ER [Concomitant]
     Active Substance: DIVALPROEX SODIUM
  3. CYMBALTA [Concomitant]
     Active Substance: DULOXETINE HYDROCHLORIDE
  4. APAP [Concomitant]
     Active Substance: ACETAMINOPHEN
  5. DULCOLAX NOS [Concomitant]
     Active Substance: BISACODYL OR DOCUSATE SODIUM
  6. ALPHAGAN P [Concomitant]
     Active Substance: BRIMONIDINE TARTRATE
  7. GLIMEPIRIDE. [Concomitant]
     Active Substance: GLIMEPIRIDE
     Dosage: CHRONIC 2MG BID PO
     Route: 048
  8. NEURONTI [Concomitant]
  9. NORVASC [Concomitant]
     Active Substance: AMLODIPINE BESYLATE
  10. VITD CALTRATE [Concomitant]

REACTIONS (3)
  - Hypoglycaemia [None]
  - Mental status changes [None]
  - Urinary tract infection [None]

NARRATIVE: CASE EVENT DATE: 20170203
